FAERS Safety Report 4273879-4 (Version None)
Quarter: 2004Q1

REPORT INFORMATION
  Report Type: 
  Country: None (occurrence: None)
  Receive Date: 20040115
  Receipt Date: 20040105
  Transmission Date: 20041129
  Serious: Yes (Death)
  Sender: FDA-Public Use
  Company Number: HQWYE953529APR03

PATIENT
  Age: 72 Year
  Sex: Male

DRUGS (8)
  1. CORDARONE [Suspect]
     Indication: ATRIAL FIBRILLATION
     Dosage: 300 MG 2X PER 1 DAY, INTRAVENOUS
     Route: 042
     Dates: start: 20030322, end: 20030324
  2. CORDARONE [Suspect]
     Indication: ATRIAL FLUTTER
     Dosage: 300 MG 2X PER 1 DAY, INTRAVENOUS
     Route: 042
     Dates: start: 20030322, end: 20030324
  3. DIGOXIN [Concomitant]
  4. ALLOPURINOL [Concomitant]
  5. LIPOZID (GEMFIBROZIL) [Concomitant]
  6. IMODIUM [Concomitant]
  7. SULFASALAZINE [Concomitant]
  8. PREDNISONE [Concomitant]

REACTIONS (3)
  - ACUTE RESPIRATORY DISTRESS SYNDROME [None]
  - AIR EMBOLISM [None]
  - PULMONARY FIBROSIS [None]
